FAERS Safety Report 5054362-5 (Version None)
Quarter: 2006Q2

REPORT INFORMATION
  Report Type: 
  Country: None (occurrence: None)
  Receive Date: 20060616
  Receipt Date: 20060505
  Transmission Date: 20061013
  Serious: Yes (Hospitalization)
  Sender: FDA-Public Use
  Company Number: 224852

PATIENT
  Age: 71 Year
  Sex: Male

DRUGS (5)
  1. AVASTIN [Suspect]
     Indication: DRUG USE FOR UNKNOWN INDICATION
  2. GEMCITABINE [Concomitant]
  3. XELODA [Concomitant]
  4. CARBOPLATIN [Concomitant]
  5. TAXOL [Concomitant]

REACTIONS (2)
  - EPISTAXIS [None]
  - HAEMATOCRIT DECREASED [None]
